FAERS Safety Report 22344792 (Version 1)
Quarter: 2023Q2

REPORT INFORMATION
  Report Type: Spontaneous
  Country: CN (occurrence: None)
  Receive Date: 20230519
  Receipt Date: 20230519
  Transmission Date: 20230722
  Serious: Yes (Life-Threatening)
  Sender: FDA-Public Use
  Company Number: CN-ROCHE-3351611

PATIENT
  Age: 77 Year
  Sex: Male
  Weight: 52.5 kg

DRUGS (2)
  1. GAZYVA [Suspect]
     Active Substance: OBINUTUZUMAB
     Indication: Follicular lymphoma
     Dosage: FORM OF ADMIN TEXT:  INJECTION
     Route: 041
     Dates: start: 20230415, end: 20230415
  2. AMIODARONE [Concomitant]
     Active Substance: AMIODARONE
     Indication: Cardioversion

REACTIONS (1)
  - Atrial fibrillation [Recovering/Resolving]

NARRATIVE: CASE EVENT DATE: 20230415
